FAERS Safety Report 12641145 (Version 3)
Quarter: 2016Q4

REPORT INFORMATION
  Report Type: Report from Study
  Country: BR (occurrence: BR)
  Receive Date: 20160810
  Receipt Date: 20161014
  Transmission Date: 20170207
  Serious: Yes (Other)
  Sender: FDA-Public Use
  Company Number: PHHY2016BR109718

PATIENT
  Age: 22 Year
  Sex: Female
  Weight: 61 kg

DRUGS (1)
  1. EXJADE [Suspect]
     Active Substance: DEFERASIROX
     Indication: THALASSAEMIA
     Dosage: 25 MG/KG, QD (1500 MG DAILY) (3 DF, QD)
     Route: 048
     Dates: end: 201605

REACTIONS (6)
  - Abortion threatened [Unknown]
  - Haemorrhage [Recovered/Resolved]
  - Weight abnormal [Unknown]
  - Muscle spasms [Unknown]
  - Serum ferritin decreased [Unknown]
  - Maternal exposure during pregnancy [Unknown]

NARRATIVE: CASE EVENT DATE: 20160731
